FAERS Safety Report 4456236-7 (Version None)
Quarter: 2004Q3

REPORT INFORMATION
  Report Type: 
  Country: None (occurrence: None)
  Receive Date: 20040902
  Receipt Date: 20040729
  Transmission Date: 20050211
  Serious: No
  Sender: FDA-Public Use
  Company Number: 200419665BWH

PATIENT
  Age: 55 Year
  Sex: Male
  Weight: 106.5953 kg

DRUGS (9)
  1. LEVITRA [Suspect]
     Indication: DISTURBANCE IN SEXUAL AROUSAL
     Dosage: 10 MG, PRN, ORAL
     Route: 048
     Dates: start: 20040729
  2. VIAGRA [Concomitant]
  3. METFORMIN [Concomitant]
  4. ALLOPURINOL [Concomitant]
  5. LISINOPRIL [Concomitant]
  6. COLCHICINE [Concomitant]
  7. AVANDIA [Concomitant]
  8. VITAMIN B6 [Concomitant]
  9. IBUPROFEN [Concomitant]

REACTIONS (2)
  - GENITAL PRURITUS MALE [None]
  - OEDEMA GENITAL [None]
